FAERS Safety Report 6331492-9 (Version None)
Quarter: 2009Q3

REPORT INFORMATION
  Report Type: 
  Country: None (occurrence: None)
  Receive Date: 20090827
  Receipt Date: 20090817
  Transmission Date: 20100115
  Serious: Yes (Death)
  Sender: FDA-Public Use
  Company Number: JP-ABBOTT-09P-087-0583397-00

PATIENT
  Sex: Male

DRUGS (4)
  1. LEUPLIN SR FOR INJECTION 11.25 MG [Suspect]
     Indication: PROSTATE CANCER STAGE IV
     Route: 058
     Dates: start: 20070821, end: 20080205
  2. CASODEX [Concomitant]
     Indication: PROSTATE CANCER STAGE IV
     Route: 048
     Dates: end: 20080306
  3. CHLORAMADINONE ACETATE [Concomitant]
     Indication: PROSTATE CANCER STAGE IV
     Dates: start: 20080307, end: 20080505
  4. HARNAL [Concomitant]
     Indication: BENIGN PROSTATIC HYPERPLASIA
     Route: 048
     Dates: start: 20080205, end: 20080316

REACTIONS (2)
  - BENIGN PROSTATIC HYPERPLASIA [None]
  - PROSTATE CANCER [None]
